FAERS Safety Report 8573659-5 (Version None)
Quarter: 2012Q2

REPORT INFORMATION
  Report Type: 
  Country: None (occurrence: None)
  Receive Date: 20120423
  Receipt Date: 20100210
  Transmission Date: 20120825
  Serious: Yes (Hospitalization)
  Sender: FDA-Public Use
  Company Number: PHEH2009US17440

PATIENT
  Age: 59 Year
  Sex: Male

DRUGS (5)
  1. MARINOL [Concomitant]
  2. MUSCLE RELAXANTS (NO INGREDIENTS/SUBSTANCES) [Concomitant]
  3. CEREFOLIN (CALCIUM L-METHYLFOLATE, CYANOCOBALAMIN, PYRIDOXINE HYDROCHL [Concomitant]
  4. EXJADE [Suspect]
     Indication: IRON OVERLOAD
     Dosage: 1250 MG, QD, ORAL : 1000 MG, QD, ORAL
     Route: 048
     Dates: start: 20091101
  5. RED BLOOD CELLS, CONCENTRATED (RED BLOOD CELLS, CONCENTRATED) [Concomitant]

REACTIONS (5)
  - PLATELET COUNT DECREASED [None]
  - VISION BLURRED [None]
  - DECREASED APPETITE [None]
  - DIARRHOEA [None]
  - THROAT TIGHTNESS [None]
